FAERS Safety Report 9351840 (Version 2)
Quarter: 2013Q2

REPORT INFORMATION
  Report Type: Spontaneous
  Country: FR (occurrence: FR)
  Receive Date: 20130617
  Receipt Date: 20130628
  Transmission Date: 20140414
  Serious: Yes (Death, Hospitalization)
  Sender: FDA-Public Use
  Company Number: FR-TEVA-412523ISR

PATIENT
  Age: 66 Year
  Sex: Male

DRUGS (4)
  1. FUROSEMIDE TEVA 40MG [Suspect]
  2. ANTIHYPERTENSIVES [Concomitant]
     Indication: HYPERTENSION
  3. UNSPECIFIED ANTI-ORGAN REJECTION DRUG [Concomitant]
     Indication: HEART TRANSPLANT
  4. UNSPECIFIED DRUG FOR PAIN [Concomitant]
     Indication: PAIN

REACTIONS (3)
  - Acute respiratory failure [Fatal]
  - Endocarditis [Fatal]
  - Somnolence [Unknown]
